FAERS Safety Report 7010688-7 (Version None)
Quarter: 2010Q3

REPORT INFORMATION
  Report Type: 
  Country: None (occurrence: None)
  Receive Date: 20100923
  Receipt Date: 20100920
  Transmission Date: 20110219
  Serious: Yes (Death, Other)
  Sender: FDA-Public Use
  Company Number: PHHY2010US62446

PATIENT
  Sex: Female

DRUGS (2)
  1. ZOMETA [Suspect]
     Dosage: ONCE A MONTH
     Route: 042
     Dates: start: 20100501, end: 20100701
  2. TARCEVA [Concomitant]

REACTIONS (1)
  - CEREBROVASCULAR ACCIDENT [None]
